FAERS Safety Report 6973772-X (Version None)
Quarter: 2010Q3

REPORT INFORMATION
  Report Type: 
  Country: None (occurrence: None)
  Receive Date: 20100909
  Receipt Date: 20100901
  Transmission Date: 20110219
  Serious: Yes (Hospitalization)
  Sender: FDA-Public Use
  Company Number: A0850023A

PATIENT
  Age: 35 Year
  Sex: Male

DRUGS (15)
  1. AVANDIA [Suspect]
     Dosage: 2MG IN THE MORNING
     Route: 048
     Dates: start: 20050101, end: 20060201
  2. CRESTOR [Concomitant]
  3. LASIX [Concomitant]
  4. LOPRESSOR [Concomitant]
  5. AMBIEN [Concomitant]
  6. ASTELIN [Concomitant]
  7. DILANTIN [Concomitant]
  8. DURAGESIC-100 [Concomitant]
  9. INSULIN [Concomitant]
  10. LORCET-HD [Concomitant]
  11. LYRICA [Concomitant]
  12. NASONEX [Concomitant]
  13. PROTONIX [Concomitant]
  14. XANAX [Concomitant]
  15. ZYRTEC [Concomitant]

REACTIONS (3)
  - CEREBROVASCULAR ACCIDENT [None]
  - CORONARY ARTERY DISEASE [None]
  - MYOCARDIAL INFARCTION [None]
